FAERS Safety Report 6699860-3 (Version None)
Quarter: 2010Q2

REPORT INFORMATION
  Report Type: 
  Country: None (occurrence: None)
  Receive Date: 20100419
  Receipt Date: 20090224
  Transmission Date: 20101027
  Serious: Yes (Hospitalization)
  Sender: FDA-Public Use
  Company Number: 08-001369

PATIENT
  Age: 24 Year
  Sex: Female
  Weight: 65.8 kg

DRUGS (7)
  1. LOESTRIN 24 FE [Suspect]
     Indication: MENSTRUATION IRREGULAR
     Dosage: 20/1000 UG, QD, ORAL
     Route: 048
     Dates: start: 20071001, end: 20070101
  2. LOESTRIN 24 FE [Suspect]
     Indication: ORAL CONTRACEPTION
     Dosage: 20/1000 UG, QD, ORAL
     Route: 048
     Dates: start: 20071001, end: 20070101
  3. REBIF [Suspect]
     Indication: MULTIPLE SCLEROSIS
     Dosage: 22 MCG, 3 IN 1 WEEK, SUBCUTANEOUS : 44 MCG, 3 IN 1 WEEK, SUBCUTANEOUS
     Route: 058
     Dates: end: 20080201
  4. REBIF [Suspect]
     Indication: MULTIPLE SCLEROSIS
     Dosage: 22 MCG, 3 IN 1 WEEK, SUBCUTANEOUS : 44 MCG, 3 IN 1 WEEK, SUBCUTANEOUS
     Route: 058
     Dates: start: 20070410
  5. BACLOFEN [Concomitant]
  6. CLONAZEPAM [Concomitant]
  7. SINGULAIR [Concomitant]

REACTIONS (2)
  - MENSTRUATION IRREGULAR [None]
  - PULMONARY EMBOLISM [None]
